FAERS Safety Report 25877762 (Version 1)
Quarter: 2025Q4

REPORT INFORMATION
  Report Type: Spontaneous
  Country: US (occurrence: None)
  Receive Date: 20251002
  Receipt Date: 20251002
  Transmission Date: 20260117
  Serious: No
  Sender: FDA-CTU
  Company Number: None

PATIENT
  Age: 41 Year
  Sex: Female

DRUGS (1)
  1. BOTOX [Suspect]
     Active Substance: ONABOTULINUMTOXINA

REACTIONS (4)
  - Circumstance or information capable of leading to medication error [None]
  - Product prescribing error [None]
  - Wrong product administered [None]
  - Victim of abuse [None]

NARRATIVE: CASE EVENT DATE: 20251002
